FAERS Safety Report 7398810-4 (Version None)
Quarter: 2011Q2

REPORT INFORMATION
  Report Type: 
  Country: None (occurrence: None)
  Receive Date: 20110407
  Receipt Date: 20110405
  Transmission Date: 20111010
  Serious: Yes (Other)
  Sender: FDA-Public Use
  Company Number: AU-AMGEN-AUSSP2010010177

PATIENT
  Sex: Female

DRUGS (4)
  1. RITUXIMAB [Concomitant]
  2. NPLATE [Suspect]
     Indication: IDIOPATHIC THROMBOCYTOPENIC PURPURA
  3. IVIGLOB-EX [Concomitant]
  4. NPLATE [Suspect]
     Indication: THROMBOCYTOPENIA
     Dosage: 275 A?G, QWK
     Dates: start: 20100101

REACTIONS (1)
  - THROMBOCYTOSIS [None]
